FAERS Safety Report 7618512-6 (Version None)
Quarter: 2011Q3

REPORT INFORMATION
  Report Type: 
  Country: None (occurrence: None)
  Receive Date: 20110718
  Receipt Date: 20091009
  Transmission Date: 20111222
  Serious: Yes (Death, Hospitalization, Other)
  Sender: FDA-Public Use
  Company Number: US-BAYER-2011-005935

PATIENT
  Age: 78 Year
  Sex: Male
  Weight: 81 kg

DRUGS (14)
  1. TRASYLOL [Suspect]
     Indication: MITRAL VALVE REPLACEMENT
     Dosage: 1 ML TEST DOSE
     Route: 042
     Dates: start: 20060815
  2. VERAPAMIL HCL [Concomitant]
     Dosage: 240 MG, QD
  3. ZINACEF [Concomitant]
     Dosage: 1.5 GMS
     Dates: start: 20060815
  4. PLASMA [Concomitant]
     Dosage: 2 UNITS
     Route: 042
     Dates: start: 20060815
  5. TRASYLOL [Suspect]
     Dosage: 50CC/HOUR
     Route: 042
     Dates: start: 20060815
  6. TRASYLOL [Suspect]
     Indication: ATRIAL SEPTAL DEFECT
     Dosage: 200 ML LOADING DOSE
     Route: 042
     Dates: start: 20060815
  7. CYANOCOBALAMIN [Concomitant]
     Dosage: 100 MCG/24HR, UNK
  8. DOPAMINE HCL [Concomitant]
     Dosage: 3 MCG
     Route: 041
     Dates: start: 20060815
  9. PRAMIPEXOLE DIHYDROCHLORIDE [Concomitant]
     Dosage: 0.25 MG BID
  10. NITROGLYCERIN [Concomitant]
     Dosage: 100 MCG
     Route: 042
     Dates: start: 20060815
  11. HEPARIN [Concomitant]
     Dosage: 26,000 UNITS
     Route: 042
     Dates: start: 20060815
  12. PROTAMINE SULFATE [Concomitant]
     Dosage: 240 MG
     Dates: start: 20060815
  13. TAMSULOSIN HCL [Concomitant]
     Dosage: 0.4MG 2 CAPSULES DAILY
  14. MIRTAZAPINE [Concomitant]
     Dosage: 30 MG, QD

REACTIONS (11)
  - RENAL IMPAIRMENT [None]
  - RENAL INJURY [None]
  - DEATH [None]
  - ANXIETY [None]
  - STRESS [None]
  - RENAL FAILURE [None]
  - FEAR [None]
  - PAIN [None]
  - EMOTIONAL DISTRESS [None]
  - UNEVALUABLE EVENT [None]
  - MULTI-ORGAN FAILURE [None]
